FAERS Safety Report 9258128 (Version 1)
Quarter: 2013Q2

REPORT INFORMATION
  Report Type: Spontaneous
  Country: DE (occurrence: DE)
  Receive Date: 20130426
  Receipt Date: 20130426
  Transmission Date: 20140414
  Serious: Yes (Hospitalization)
  Sender: FDA-Public Use
  Company Number: DE-BRISTOL-MYERS SQUIBB COMPANY-18828210

PATIENT
  Age: 63 Year
  Sex: Female
  Weight: 100 kg

DRUGS (8)
  1. METFORMIN HCL [Suspect]
     Indication: TYPE 2 DIABETES MELLITUS
     Route: 048
     Dates: start: 20101201, end: 20110512
  2. ASS 100 [Concomitant]
     Route: 048
  3. RAMIPRIL [Concomitant]
     Route: 048
  4. FUROSEMIDE [Concomitant]
     Route: 048
  5. LOSARTAN [Concomitant]
     Dosage: 1-0-1
     Route: 048
  6. ALLOPURINOL [Concomitant]
     Route: 048
  7. AMLODIPINE [Concomitant]
     Route: 048
  8. DOXEPIN [Concomitant]
     Dosage: 1-0-1
     Route: 048

REACTIONS (3)
  - Lactic acidosis [Recovered/Resolved]
  - Hyperkalaemia [Recovered/Resolved]
  - Renal failure acute [Recovered/Resolved]
